FAERS Safety Report 16012841 (Version 6)
Quarter: 2019Q2

REPORT INFORMATION
  Report Type: Spontaneous
  Country: PL (occurrence: PL)
  Receive Date: 20190227
  Receipt Date: 20190607
  Transmission Date: 20190711
  Serious: Yes (Death, Other)
  Sender: FDA-Public Use
  Company Number: PHHY2019PL024653

PATIENT
  Age: 55 Year
  Sex: Female

DRUGS (15)
  1. EXEMESTANE. [Suspect]
     Active Substance: EXEMESTANE
     Indication: DISEASE PROGRESSION
     Dosage: UNK
     Route: 065
  2. CAPECITABINE. [Suspect]
     Active Substance: CAPECITABINE
     Indication: DISEASE PROGRESSION
     Dosage: 2000 MG/M2
     Route: 048
  3. LETROZOLE. [Suspect]
     Active Substance: LETROZOLE
     Indication: INVASIVE BREAST CARCINOMA
  4. DOCETAXEL. [Suspect]
     Active Substance: DOCETAXEL
     Indication: BREAST CANCER
     Dosage: 75 MG/M2, Q3W (6 CYCLICAL)
     Route: 065
  5. DOXORUBICIN [Suspect]
     Active Substance: DOXORUBICIN
     Indication: BREAST CANCER
     Dosage: 50 MG/M2, Q3W (6 CYCLICALS)
     Route: 042
  6. DOXORUBICIN [Suspect]
     Active Substance: DOXORUBICIN
     Dosage: 60 MG/M2, Q3W
     Route: 042
  7. FULVESTRANT. [Concomitant]
     Active Substance: FULVESTRANT
     Indication: PRODUCT USED FOR UNKNOWN INDICATION
     Dosage: UNK
     Route: 065
  8. CYCLOPHOSPHAMIDE. [Suspect]
     Active Substance: CYCLOPHOSPHAMIDE
     Indication: BREAST CANCER
     Dosage: 600 MG/M2, Q3W
     Route: 065
  9. PACLITAXEL. [Concomitant]
     Active Substance: PACLITAXEL
     Indication: PRODUCT USED FOR UNKNOWN INDICATION
     Dosage: UNK
     Route: 065
  10. LETROZOLE. [Suspect]
     Active Substance: LETROZOLE
     Indication: HORMONE THERAPY
  11. CYCLOPHOSPHAMIDE. [Suspect]
     Active Substance: CYCLOPHOSPHAMIDE
     Indication: METASTASES TO SKIN
  12. VINORELBINE [Concomitant]
     Active Substance: VINORELBINE\VINORELBINE TARTRATE
     Indication: PRODUCT USED FOR UNKNOWN INDICATION
     Dosage: UNK
     Route: 065
  13. LETROZOLE. [Suspect]
     Active Substance: LETROZOLE
     Indication: BREAST CANCER
     Dosage: UNK
     Route: 065
  14. LETROZOLE. [Suspect]
     Active Substance: LETROZOLE
     Indication: DISEASE PROGRESSION
  15. METHOTREXATE. [Concomitant]
     Active Substance: METHOTREXATE
     Indication: PRODUCT USED FOR UNKNOWN INDICATION
     Dosage: UNK
     Route: 065

REACTIONS (7)
  - Congenital haematological disorder [Fatal]
  - Lymphoedema [Fatal]
  - Metastases to skin [Unknown]
  - Infection [Unknown]
  - Product use in unapproved indication [Unknown]
  - Deep vein thrombosis [Fatal]
  - Post thrombotic syndrome [Recovering/Resolving]
